FAERS Safety Report 4808287-8 (Version None)
Quarter: 2005Q4

REPORT INFORMATION
  Report Type: 
  Country: None (occurrence: None)
  Receive Date: 20051021
  Receipt Date: 20051011
  Transmission Date: 20060501
  Serious: Yes (Other)
  Sender: FDA-Public Use
  Company Number: 2005-DE-04219GD

PATIENT
  Age: 76 Year
  Sex: Male

DRUGS (2)
  1. MORPHINE [Suspect]
     Indication: PAIN
     Dosage: NR (NR); IT
     Route: 038
  2. LEVODOPA (LEVODOPA) [Suspect]
     Indication: PARKINSONISM
     Dosage: 820 +/-75 MG (NR), NR

REACTIONS (3)
  - DYSKINESIA [None]
  - GAIT DISTURBANCE [None]
  - POSTURE ABNORMAL [None]
